FAERS Safety Report 13456766 (Version 2)
Quarter: 2017Q2

REPORT INFORMATION
  Report Type: Spontaneous
  Country: JP (occurrence: JP)
  Receive Date: 20170418
  Receipt Date: 20170508
  Transmission Date: 20170830
  Serious: Yes (Other)
  Sender: FDA-Public Use
  Company Number: JP-BAXALTA-2017BLT003162

PATIENT
  Age: 31 Year
  Sex: Female

DRUGS (2)
  1. GAMMAGARD [Suspect]
     Active Substance: HUMAN IMMUNOGLOBULIN G
     Indication: OFF LABEL USE
  2. GAMMAGARD [Suspect]
     Active Substance: HUMAN IMMUNOGLOBULIN G
     Indication: PROPHYLAXIS
     Dosage: 1 G/KG (BODY WEIGHT), 1X A WEEK
     Route: 042

REACTIONS (3)
  - Headache [Recovered/Resolved]
  - Thrombocytopenia [Recovered/Resolved]
  - Exposure during pregnancy [Recovered/Resolved]
